FAERS Safety Report 9500608 (Version 5)
Quarter: 2013Q4

REPORT INFORMATION
  Report Type: Spontaneous
  Country: JP (occurrence: JP)
  Receive Date: 20130905
  Receipt Date: 20131025
  Transmission Date: 20140711
  Serious: Yes (Hospitalization, Other)
  Sender: FDA-Public Use
  Company Number: JP-ASTRAZENECA-2013SE56786

PATIENT
  Age: 85 Year
  Sex: Female

DRUGS (4)
  1. FASLODEX [Suspect]
     Indication: BREAST CANCER
     Dosage: ONCE EVERY TWO WEEKS, INITIAL DOSE, DOSE UNKNOWN
     Route: 030
     Dates: start: 20130708
  2. FASLODEX [Suspect]
     Indication: BREAST CANCER
     Dosage: EVERY FOUR WEEKS, SECOND DOSE, DOSE UNKNOWN
     Route: 030
     Dates: start: 20130721
  3. FASLODEX [Suspect]
     Indication: BREAST CANCER
     Dosage: EVERY FOUR WEEKS, THIRD DOSE, DOSE UNKNOWN
     Route: 030
     Dates: start: 20130826
  4. NOLVADEX [Suspect]
     Indication: BREAST CANCER
     Route: 048

REACTIONS (12)
  - Pneumonia [Recovered/Resolved]
  - Metastases to liver [Unknown]
  - Metastases to skin [Unknown]
  - Malignant neoplasm progression [Unknown]
  - Malignant neoplasm progression [Unknown]
  - Pyrexia [Recovered/Resolved]
  - Breast pain [Recovering/Resolving]
  - Blood pressure increased [Unknown]
  - Diarrhoea [Unknown]
  - Decreased appetite [Unknown]
  - Vomiting [Unknown]
  - Pruritus [Recovered/Resolved]
